FAERS Safety Report 8268143-2 (Version None)
Quarter: 2012Q2

REPORT INFORMATION
  Report Type: 
  Country: None (occurrence: None)
  Receive Date: 20120409
  Receipt Date: 20120403
  Transmission Date: 20120825
  Serious: No
  Sender: FDA-Public Use
  Company Number: US-PFIZER INC-2012084507

PATIENT
  Sex: Female
  Weight: 68.027 kg

DRUGS (5)
  1. EFFEXOR XR [Suspect]
     Indication: MIGRAINE
     Dosage: UNK
     Dates: end: 20111201
  2. VENLAFAXINE HCL [Suspect]
     Indication: MIGRAINE
     Dosage: 150 MG, 1X/DAY
     Dates: start: 20111201
  3. EFFEXOR XR [Suspect]
     Indication: ANXIETY
  4. VENLAFAXINE HCL [Suspect]
     Indication: ANXIETY
  5. ALPRAZOLAM [Concomitant]
     Indication: ANXIETY
     Dosage: 0.5 MG, AS NEEDED

REACTIONS (8)
  - BLOOD GLUCOSE INCREASED [None]
  - MUSCULOSKELETAL STIFFNESS [None]
  - HIGH DENSITY LIPOPROTEIN INCREASED [None]
  - LOW DENSITY LIPOPROTEIN DECREASED [None]
  - ANXIETY [None]
  - DRUG INEFFECTIVE [None]
  - NERVOUSNESS [None]
  - FEELING ABNORMAL [None]
